FAERS Safety Report 6013678-6 (Version None)
Quarter: 2008Q4

REPORT INFORMATION
  Report Type: 
  Country: None (occurrence: None)
  Receive Date: 20081219
  Receipt Date: 20081216
  Transmission Date: 20090506
  Serious: Yes (Hospitalization, Congenital Anomaly)
  Sender: FDA-Public Use
  Company Number: A0682209A

PATIENT
  Sex: Female
  Weight: 4.7 kg

DRUGS (6)
  1. PAXIL [Suspect]
     Indication: DEPRESSION
     Dosage: 40MG PER DAY
     Dates: start: 20000101
  2. PAROXETINE HCL [Suspect]
     Indication: DEPRESSION
     Dosage: 40MG PER DAY
     Dates: start: 20000101
  3. VITAMIN TAB [Concomitant]
  4. GLYBURIDE [Concomitant]
     Indication: GESTATIONAL DIABETES
  5. PREVACID [Concomitant]
  6. IRON [Concomitant]

REACTIONS (10)
  - CARDIAC MURMUR [None]
  - COLLAPSE OF LUNG [None]
  - CONGENITAL ANOMALY [None]
  - DRUG EXPOSURE DURING PREGNANCY [None]
  - DYSPHAGIA [None]
  - DYSPNOEA [None]
  - HYPOTONIA [None]
  - MULTIPLE CONGENITAL ABNORMALITIES [None]
  - PERSISTENT FOETAL CIRCULATION [None]
  - POOR SUCKING REFLEX [None]
